FAERS Safety Report 4516461-3 (Version None)
Quarter: 2004Q4

REPORT INFORMATION
  Report Type: 
  Country: None (occurrence: None)
  Receive Date: 20041027
  Receipt Date: 20040714
  Transmission Date: 20050328
  Serious: No
  Sender: FDA-Public Use
  Company Number: US083411

PATIENT
  Age: 42 Year
  Sex: Female
  Weight: 104 kg

DRUGS (6)
  1. SENSIPAR [Suspect]
     Indication: HYPERPARATHYROIDISM SECONDARY
     Dosage: 30 MG, 1 IN 1 DAYS, PO
     Route: 048
     Dates: start: 20040628, end: 20040706
  2. CYANOCOBALAMIN [Suspect]
     Dates: start: 20040706, end: 20040707
  3. CHROMAGEN FORTE [Concomitant]
  4. DOXERCALCEROL [Concomitant]
  5. SEVELAMER HCL [Concomitant]
  6. POTASSIUM CHLORIDE [Concomitant]

REACTIONS (3)
  - DYSPHAGIA [None]
  - HYPERSENSITIVITY [None]
  - SWELLING FACE [None]
